FAERS Safety Report 9410393 (Version 1)
Quarter: 2013Q3

REPORT INFORMATION
  Report Type: Spontaneous
  Country: US (occurrence: None)
  Receive Date: 20130718
  Receipt Date: 20130718
  Transmission Date: 20140515
  Serious: Yes (Other)
  Sender: FDA-Public Use
  Company Number: None

PATIENT
  Age: 54 Year
  Sex: Female

DRUGS (1)
  1. REMICADE [Suspect]
     Dosage: 200 MG EVERY 6 WEEKS IV
     Route: 042
     Dates: start: 20120927, end: 20130513

REACTIONS (3)
  - Pruritus [None]
  - Urticaria [None]
  - Infusion related reaction [None]
